FAERS Safety Report 25777948 (Version 2)
Quarter: 2025Q4

REPORT INFORMATION
  Report Type: Report from Study
  Country: CA (occurrence: None)
  Receive Date: 20250909
  Receipt Date: 20251105
  Transmission Date: 20260118
  Serious: Yes (Hospitalization)
  Sender: UCB
  Company Number: CA-UCBSA-2025055012

PATIENT
  Age: 57 Year

DRUGS (1)
  1. CERTOLIZUMAB PEGOL [Suspect]
     Active Substance: CERTOLIZUMAB PEGOL
     Indication: Ankylosing spondylitis
     Dosage: 200 MILLIGRAM, EV 2 WEEKS(QOW)

REACTIONS (3)
  - Pneumonia legionella [Unknown]
  - Fear [Unknown]
  - Adverse drug reaction [Unknown]
